FAERS Safety Report 5196970-7 (Version None)
Quarter: 2006Q4

REPORT INFORMATION
  Report Type: 
  Country: None (occurrence: None)
  Receive Date: 20061227
  Receipt Date: 20061213
  Transmission Date: 20070319
  Serious: Yes (Hospitalization)
  Sender: FDA-Public Use
  Company Number: 2006SP008349

PATIENT
  Sex: Male

DRUGS (1)
  1. PEGATRON (PEGYLATED INTERFERON ALFA-2B W/RIBAVIRIN) [Suspect]
     Indication: HEPATITIS C
     Dosage: SEE IMAGE
     Dates: start: 20060817

REACTIONS (14)
  - AMNESIA [None]
  - CONFUSIONAL STATE [None]
  - DELIRIUM [None]
  - DISORIENTATION [None]
  - FALL [None]
  - FIBULA FRACTURE [None]
  - HALLUCINATION, AUDITORY [None]
  - JOINT DISLOCATION [None]
  - LOCALISED INFECTION [None]
  - LUMBAR VERTEBRAL FRACTURE [None]
  - PSYCHOTIC DISORDER [None]
  - RADIUS FRACTURE [None]
  - SUICIDAL IDEATION [None]
  - TIBIA FRACTURE [None]
